FAERS Safety Report 11642110 (Version 5)
Quarter: 2017Q3

REPORT INFORMATION
  Report Type: Spontaneous
  Country: JP (occurrence: JP)
  Receive Date: 20151019
  Receipt Date: 20170720
  Transmission Date: 20171127
  Serious: Yes (Disabling, Other)
  Sender: FDA-Public Use
  Company Number: JP-GILEAD-2015-0176151AA

PATIENT
  Age: 70 Year
  Sex: Female
  Weight: 70 kg

DRUGS (6)
  1. SOVALDI [Suspect]
     Active Substance: SOFOSBUVIR
     Indication: CHRONIC HEPATITIS C
     Dosage: 400 MG, QD
     Route: 048
     Dates: start: 20150917, end: 20151001
  2. URSO [Concomitant]
     Active Substance: URSODIOL
     Dosage: 2 DF, QD
     Route: 048
  3. CEREGASRON [Concomitant]
     Active Substance: IRSOGLADINE MALEATE
     Dosage: 4 MG, QD
     Route: 048
  4. REBETOL [Suspect]
     Active Substance: RIBAVIRIN
     Indication: CHRONIC HEPATITIS C
     Dosage: UNK
     Route: 048
     Dates: start: 20150917, end: 20151001
  5. ZACRAS [Concomitant]
     Active Substance: AMLODIPINE BESYLATE\AZILSARTAN
     Dosage: 1 DF, QD
     Route: 048
  6. PROHEPARUM S [Concomitant]
     Dosage: UNK
     Route: 048

REACTIONS (5)
  - Jaundice [Recovering/Resolving]
  - Liver disorder [Recovering/Resolving]
  - Decreased appetite [Recovered/Resolved]
  - Blood bilirubin increased [Recovered/Resolved]
  - Malaise [Recovered/Resolved]

NARRATIVE: CASE EVENT DATE: 2015
